FAERS Safety Report 8049263-4 (Version None)
Quarter: 2012Q1

REPORT INFORMATION
  Report Type: 
  Country: None (occurrence: None)
  Receive Date: 20120117
  Receipt Date: 20120105
  Transmission Date: 20120608
  Serious: Yes (Other)
  Sender: FDA-Public Use
  Company Number: JP-ELI_LILLY_AND_COMPANY-JP201201002790

PATIENT
  Age: 55 Year
  Sex: Female

DRUGS (4)
  1. CYMBALTA [Suspect]
     Indication: DEPRESSION
     Dosage: 60 MG, QD
     Route: 048
     Dates: start: 20110511, end: 20110718
  2. DOGMATYL [Concomitant]
     Dosage: UNK
     Route: 048
  3. SEPAZON [Concomitant]
     Dosage: UNK
     Route: 048
  4. HALCION [Concomitant]
     Dosage: UNK
     Route: 048

REACTIONS (1)
  - PHYSICAL ASSAULT [None]
